FAERS Safety Report 25582140 (Version 1)
Quarter: 2025Q3

REPORT INFORMATION
  Report Type: Spontaneous
  Country: EU (occurrence: EU)
  Receive Date: 20250719
  Receipt Date: 20250719
  Transmission Date: 20251021
  Serious: Yes (Death, Life-Threatening, Other)
  Sender: RANBAXY
  Company Number: EU-SUN PHARMACEUTICAL INDUSTRIES LTD-2025R1-517310

PATIENT
  Age: 76 Year
  Sex: Male
  Weight: 80 kg

DRUGS (18)
  1. MEROPENEM [Suspect]
     Active Substance: MEROPENEM
     Indication: Pneumonia legionella
     Dosage: 1 GRAM, TID
     Route: 065
  2. MEROPENEM [Suspect]
     Active Substance: MEROPENEM
     Indication: Klebsiella infection
  3. MEROPENEM [Suspect]
     Active Substance: MEROPENEM
     Indication: COVID-19
  4. CEFTRIAXONE [Suspect]
     Active Substance: CEFTRIAXONE
     Indication: Pneumonia legionella
     Dosage: 2 GRAM, DAILY
     Route: 065
  5. CEFTRIAXONE [Suspect]
     Active Substance: CEFTRIAXONE
     Indication: Klebsiella infection
  6. CEFTRIAXONE [Suspect]
     Active Substance: CEFTRIAXONE
     Indication: COVID-19
  7. DEXAMETHASONE [Suspect]
     Active Substance: DEXAMETHASONE
     Indication: Pneumonia legionella
     Dosage: 8 MILLIGRAM, DAILY
     Route: 065
  8. DEXAMETHASONE [Suspect]
     Active Substance: DEXAMETHASONE
     Indication: Klebsiella infection
  9. DEXAMETHASONE [Suspect]
     Active Substance: DEXAMETHASONE
     Indication: COVID-19
  10. ENOXAPARIN SODIUM [Suspect]
     Active Substance: ENOXAPARIN SODIUM
     Indication: Pneumonia legionella
     Dosage: 80 MILLIGRAM, BID
     Route: 065
  11. ENOXAPARIN SODIUM [Suspect]
     Active Substance: ENOXAPARIN SODIUM
     Indication: Klebsiella infection
  12. ENOXAPARIN SODIUM [Suspect]
     Active Substance: ENOXAPARIN SODIUM
     Indication: COVID-19
  13. COLISTIN [Suspect]
     Active Substance: COLISTIN
     Indication: Pneumonia legionella
     Dosage: 2.5 MILLION INTERNATIONAL UNIT, BID
     Route: 065
  14. COLISTIN [Suspect]
     Active Substance: COLISTIN
     Indication: Klebsiella infection
  15. COLISTIN [Suspect]
     Active Substance: COLISTIN
     Indication: COVID-19
  16. AVIBACTAM SODIUM\CEFTAZIDIME [Suspect]
     Active Substance: AVIBACTAM SODIUM\CEFTAZIDIME
     Indication: Pneumonia legionella
     Route: 065
  17. AVIBACTAM SODIUM\CEFTAZIDIME [Suspect]
     Active Substance: AVIBACTAM SODIUM\CEFTAZIDIME
     Indication: Klebsiella infection
  18. AVIBACTAM SODIUM\CEFTAZIDIME [Suspect]
     Active Substance: AVIBACTAM SODIUM\CEFTAZIDIME
     Indication: COVID-19

REACTIONS (8)
  - Condition aggravated [Fatal]
  - Respiratory failure [Unknown]
  - Septic shock [Unknown]
  - Tachypnoea [Unknown]
  - Pyrexia [Unknown]
  - Asthenia [Unknown]
  - Anxiety [Unknown]
  - Psychomotor hyperactivity [Unknown]
